FAERS Safety Report 10007310 (Version 2)
Quarter: 2014Q1

REPORT INFORMATION
  Report Type: Spontaneous
  Country: CA (occurrence: None)
  Receive Date: 20140311
  Receipt Date: 20140313
  Transmission Date: 20141002
  Serious: Yes (Hospitalization)
  Sender: FDA-Public Use
  Company Number: CA-014894

PATIENT
  Age: 76 Year
  Sex: Male

DRUGS (3)
  1. FIRMAGON [Suspect]
     Indication: PROSTATE CANCER
     Dosage: 80 MG 1X /MONTH SUBCUTANEOUS
     Route: 058
     Dates: start: 20131112
  2. METFORMIN [Concomitant]
  3. CASODEX [Concomitant]

REACTIONS (3)
  - Diarrhoea [None]
  - Dehydration [None]
  - Clostridium difficile infection [None]
